FAERS Safety Report 7269854-8 (Version None)
Quarter: 2011Q1

REPORT INFORMATION
  Report Type: 
  Country: None (occurrence: None)
  Receive Date: 20110125
  Receipt Date: 20110125
  Transmission Date: 20110831
  Serious: Yes (Hospitalization)
  Sender: FDA-Public Use
  Company Number: None

PATIENT
  Sex: Male
  Weight: 74 kg

DRUGS (2)
  1. VINORELBINE TARTRATE [Suspect]
     Dosage: 110 MG
     Dates: end: 20110110
  2. CISPLATIN [Suspect]
     Dosage: 140 MG
     Dates: end: 20110103

REACTIONS (2)
  - NEUTROPENIA [None]
  - DYSPNOEA [None]
